FAERS Safety Report 14524824 (Version 1)
Quarter: 2018Q1

REPORT INFORMATION
  Report Type: Other
  Country: FR (occurrence: FR)
  Receive Date: 20180213
  Receipt Date: 20180213
  Transmission Date: 20180509
  Serious: Yes (Other)
  Sender: FDA-Public Use
  Company Number: FR-MACLEODS PHARMACEUTICALS US LTD-MAC2018009552

PATIENT

DRUGS (6)
  1. ATORVASTATIN [Suspect]
     Active Substance: ATORVASTATIN
     Indication: MACROANGIOPATHY
     Dosage: UNK
     Route: 065
  2. METFORMIN HYDROCHLORIDE TABLET [Suspect]
     Active Substance: METFORMIN HYDROCHLORIDE
     Indication: DIABETES MELLITUS
     Dosage: UNK, FILM-COATED TABLET
     Route: 048
  3. CABERGOLINE. [Concomitant]
     Active Substance: CABERGOLINE
     Indication: PITUITARY TUMOUR BENIGN
     Dosage: UNK
     Route: 065
  4. INSULIN [Suspect]
     Active Substance: INSULIN NOS
     Indication: DIABETES MELLITUS
     Dosage: UNK, 55 U, MORNING AND NIGHT
     Route: 065
  5. CLOPIDOGREL [Suspect]
     Active Substance: CLOPIDOGREL BISULFATE
     Indication: MACROANGIOPATHY
     Dosage: UNK
     Route: 065
  6. LANREOTIDE [Concomitant]
     Active Substance: LANREOTIDE
     Indication: PITUITARY TUMOUR BENIGN
     Dosage: 120 MG, UNK
     Route: 065

REACTIONS (2)
  - Maculopathy [Recovered/Resolved]
  - Vitreous haemorrhage [Recovered/Resolved]

NARRATIVE: CASE EVENT DATE: 2016
